FAERS Safety Report 18175505 (Version 2)
Quarter: 2021Q1

REPORT INFORMATION
  Report Type: Other
  Country: US (occurrence: US)
  Receive Date: 20200820
  Receipt Date: 20210326
  Transmission Date: 20210419
  Serious: No
  Sender: FDA-Public Use
  Company Number: US-ROCHE-2658907

PATIENT
  Sex: Female

DRUGS (1)
  1. OCREVUS [Suspect]
     Active Substance: OCRELIZUMAB
     Indication: RELAPSING MULTIPLE SCLEROSIS
     Dosage: DATE OF TREATMENT: 14/JAN/2019, 15/JUL/2019, 30/DEC/2019, 27/JAN/2020?PRESCRIBED WITH DOSE 300 MG IV
     Route: 042
     Dates: start: 20181228

REACTIONS (1)
  - COVID-19 [Not Recovered/Not Resolved]
